FAERS Safety Report 14554679 (Version 1)
Quarter: 2018Q1

REPORT INFORMATION
  Report Type: Spontaneous
  Country: US (occurrence: US)
  Receive Date: 20180220
  Receipt Date: 20180220
  Transmission Date: 20180509
  Serious: No
  Sender: FDA-Public Use
  Company Number: US-IPSEN BIOPHARMACEUTICALS, INC.-2017-15591

PATIENT
  Sex: Female

DRUGS (5)
  1. DYSPORT [Suspect]
     Active Substance: ABOBOTULINUMTOXINA
     Indication: OFF LABEL USE
  2. DYSPORT [Suspect]
     Active Substance: ABOBOTULINUMTOXINA
     Indication: SKIN WRINKLING
     Dosage: 72 UNITS
     Route: 065
     Dates: start: 20171109, end: 20171109
  3. DYSPORT [Suspect]
     Active Substance: ABOBOTULINUMTOXINA
     Indication: SKIN WRINKLING
     Dosage: NOT REPORTED
     Route: 065
     Dates: start: 201711, end: 201711
  4. DYSPORT [Suspect]
     Active Substance: ABOBOTULINUMTOXINA
     Indication: SKIN WRINKLING
  5. RESTYLANE REFYNE [Suspect]
     Active Substance: HYALURONIC ACID\LIDOCAINE
     Indication: SKIN COSMETIC PROCEDURE
     Dates: start: 20171109, end: 20171109

REACTIONS (6)
  - Drug ineffective [Unknown]
  - Off label use [Unknown]
  - Intentional product misuse [Unknown]
  - Product preparation error [Unknown]
  - Product storage error [Unknown]
  - Inappropriate schedule of drug administration [Unknown]
